FAERS Safety Report 20006534 (Version 1)
Quarter: 2021Q4

REPORT INFORMATION
  Report Type: Spontaneous
  Country: US (occurrence: US)
  Receive Date: 20211028
  Receipt Date: 20211028
  Transmission Date: 20220303
  Serious: No
  Sender: FDA-Public Use
  Company Number: None

PATIENT
  Sex: Female

DRUGS (1)
  1. REGEN-COV [Suspect]
     Active Substance: CASIRIVIMAB\IMDEVIMAB
     Indication: COVID-19 treatment
     Route: 058

REACTIONS (5)
  - Blood pressure decreased [None]
  - Hyperhidrosis [None]
  - Body temperature decreased [None]
  - Injection site erythema [None]
  - Urticaria [None]
